FAERS Safety Report 18528013 (Version 1)
Quarter: 2020Q4

REPORT INFORMATION
  Report Type: Report from Study
  Country: None (occurrence: US)
  Receive Date: 20201120
  Receipt Date: 20201120
  Transmission Date: 20210114
  Serious: Yes (Hospitalization)
  Sender: FDA-Public Use
  Company Number: US-ABBVIE-18P-163-2449119-00

PATIENT
  Age: 30 Year
  Sex: Female

DRUGS (12)
  1. PREDNISONE. [Concomitant]
     Active Substance: PREDNISONE
     Route: 048
     Dates: end: 20170817
  2. UCERIS [Concomitant]
     Active Substance: BUDESONIDE
     Indication: COLITIS ULCERATIVE
     Route: 048
     Dates: start: 20130530, end: 20140710
  3. UCERIS [Concomitant]
     Active Substance: BUDESONIDE
     Route: 048
     Dates: start: 20160204, end: 20171011
  4. MESALAMINE. [Concomitant]
     Active Substance: MESALAMINE
     Route: 048
     Dates: start: 201703, end: 20180731
  5. FERROUS SULFATE. [Concomitant]
     Active Substance: FERROUS SULFATE
     Indication: ANAEMIA
     Route: 048
     Dates: start: 20160204
  6. PREDNISONE. [Concomitant]
     Active Substance: PREDNISONE
     Indication: COLITIS ULCERATIVE
     Route: 053
     Dates: start: 20160108, end: 20160226
  7. HUMIRA [Suspect]
     Active Substance: ADALIMUMAB
     Indication: COLITIS ULCERATIVE
     Route: 058
     Dates: start: 20140315, end: 20170817
  8. PREDNISONE. [Concomitant]
     Active Substance: PREDNISONE
     Route: 048
     Dates: start: 20170918, end: 20171030
  9. APRISO [Concomitant]
     Active Substance: MESALAMINE
     Indication: COLITIS ULCERATIVE
     Dosage: FREQUENCY: QAM
     Route: 048
     Dates: start: 20130510, end: 20140710
  10. HUMIRA [Suspect]
     Active Substance: ADALIMUMAB
     Route: 058
     Dates: start: 20170918
  11. MESALAMINE. [Concomitant]
     Active Substance: MESALAMINE
     Indication: COLITIS ULCERATIVE
     Dosage: QHS
     Route: 054
     Dates: start: 201703, end: 20180731
  12. PROCTOFOAM HC [Concomitant]
     Active Substance: HYDROCORTISONE ACETATE\PRAMOXINE HYDROCHLORIDE
     Indication: COLITIS ULCERATIVE
     Route: 054
     Dates: start: 20180801

REACTIONS (3)
  - Breech presentation [Recovered/Resolved]
  - Live birth [Unknown]
  - Maternal exposure during pregnancy [Unknown]

NARRATIVE: CASE EVENT DATE: 20170911
